FAERS Safety Report 8615281-8 (Version None)
Quarter: 2012Q3

REPORT INFORMATION
  Report Type: 
  Country: None (occurrence: None)
  Receive Date: 20120823
  Receipt Date: 20120820
  Transmission Date: 20120928
  Serious: Yes (Hospitalization)
  Sender: FDA-Public Use
  Company Number: US-PFIZER INC-2012156556

PATIENT
  Age: 45 Year
  Sex: Female
  Weight: 72.562 kg

DRUGS (8)
  1. SOMA [Concomitant]
     Dosage: 350 MG, 2X/DAY
  2. HYDROCODONE [Concomitant]
     Indication: PAIN
     Dosage: 7.5 MG, 4X/DAY
  3. LYRICA [Suspect]
     Indication: NERVE INJURY
     Dosage: 75 MG, 2X/DAY
     Route: 048
     Dates: start: 20120611, end: 20120601
  4. NEURONTIN [Suspect]
     Indication: FIBROMYALGIA
  5. NORCO [Concomitant]
     Indication: PROCEDURAL PAIN
     Dosage: 7.5/325, AS NEEDED
  6. LYRICA [Suspect]
     Indication: FIBROMYALGIA
     Dosage: 75 MG, 3X/DAY
     Dates: start: 20120601, end: 20120724
  7. NEURONTIN [Suspect]
     Indication: NERVE INJURY
     Dosage: 300 MG, 4X/DAY
     Dates: start: 20120101, end: 20120601
  8. NORCO [Concomitant]
     Dosage: 7.5/325MG

REACTIONS (8)
  - CONFUSIONAL STATE [None]
  - MOOD ALTERED [None]
  - LETHARGY [None]
  - FEELING ABNORMAL [None]
  - ALOPECIA [None]
  - DRUG INEFFECTIVE [None]
  - BLOOD PRESSURE DECREASED [None]
  - DIZZINESS [None]
